FAERS Safety Report 13829723 (Version 2)
Quarter: 2017Q3

REPORT INFORMATION
  Report Type: Spontaneous
  Country: US (occurrence: US)
  Receive Date: 20170803
  Receipt Date: 20170821
  Transmission Date: 20171127
  Serious: Yes (Other)
  Sender: FDA-Public Use
  Company Number: US-009507513-1708USA001598

PATIENT
  Sex: Female

DRUGS (1)
  1. IMPLANON [Suspect]
     Active Substance: ETONOGESTREL
     Indication: PRODUCT USED FOR UNKNOWN INDICATION
     Route: 059

REACTIONS (34)
  - Breast mass [Unknown]
  - Implant site erythema [Unknown]
  - Respiratory rate increased [Unknown]
  - Insomnia [Unknown]
  - Menstrual disorder [Unknown]
  - Asthenia [Unknown]
  - Pelvic pain [Unknown]
  - Yellow skin [Unknown]
  - Acne [Unknown]
  - Influenza like illness [Unknown]
  - Hypertension [Unknown]
  - Seizure [Unknown]
  - Hyperhidrosis [Unknown]
  - Malaise [Unknown]
  - Weight increased [Unknown]
  - Deep vein thrombosis [Unknown]
  - Hypoaesthesia [Unknown]
  - Implant site inflammation [Unknown]
  - Depression [Unknown]
  - Vaginal discharge [Unknown]
  - Chest pain [Unknown]
  - Device difficult to use [Not Recovered/Not Resolved]
  - Thrombosis [Unknown]
  - Hypersensitivity [Unknown]
  - Abdominal discomfort [Unknown]
  - Complication associated with device [Unknown]
  - Breast swelling [Unknown]
  - Wheezing [Unknown]
  - Device dislocation [Unknown]
  - Implant site pain [Unknown]
  - Cough [Unknown]
  - Nausea [Unknown]
  - Dysmenorrhoea [Unknown]
  - Breast pain [Unknown]
